FAERS Safety Report 15193551 (Version 1)
Quarter: 2018Q3

REPORT INFORMATION
  Report Type: Report from Study
  Country: ES (occurrence: ES)
  Receive Date: 20180725
  Receipt Date: 20180725
  Transmission Date: 20181010
  Serious: Yes (Other)
  Sender: FDA-Public Use
  Company Number: ES-ASTELLAS-2018US027754

PATIENT
  Sex: Female

DRUGS (3)
  1. TACROLIMUS. [Suspect]
     Active Substance: TACROLIMUS
     Indication: IMMUNOSUPPRESSION
  2. TACROLIMUS. [Suspect]
     Active Substance: TACROLIMUS
     Indication: TRANSPLANT
     Route: 048
  3. FOLIC ACID. [Concomitant]
     Active Substance: FOLIC ACID
     Indication: DEFICIENCY ANAEMIA
     Dosage: UNK UNK, ONCE DAILY
     Route: 048

REACTIONS (4)
  - Acne [Unknown]
  - Skin lesion [Unknown]
  - Seborrhoea [Unknown]
  - Drug dose omission [Unknown]
